FAERS Safety Report 14802485 (Version 4)
Quarter: 2018Q3

REPORT INFORMATION
  Report Type: Spontaneous
  Country: US (occurrence: US)
  Receive Date: 20180424
  Receipt Date: 20180706
  Transmission Date: 20181010
  Serious: Yes (Hospitalization, Disabling, Other)
  Sender: FDA-Public Use
  Company Number: US-REGENERON PHARMACEUTICALS, INC.-2018-12863

PATIENT

DRUGS (2)
  1. EYLEA [Suspect]
     Active Substance: AFLIBERCEPT
     Indication: DIABETIC RETINAL OEDEMA
     Dosage: 2 MG/0.05 ML, OD, 4 WEEKS
     Route: 031
     Dates: start: 20150408
  2. EYLEA [Suspect]
     Active Substance: AFLIBERCEPT
     Dosage: 2 MG/0.05 ML, OD, LAST DOSE
     Route: 031
     Dates: start: 20180125, end: 20180125

REACTIONS (5)
  - Cerebrovascular accident [Unknown]
  - Drug dose omission [Unknown]
  - Blindness transient [Unknown]
  - Non-infectious endophthalmitis [Unknown]
  - Ill-defined disorder [Unknown]

NARRATIVE: CASE EVENT DATE: 20180126
